FAERS Safety Report 7691672-7 (Version None)
Quarter: 2011Q3

REPORT INFORMATION
  Report Type: 
  Country: None (occurrence: None)
  Receive Date: 20110818
  Receipt Date: 20110810
  Transmission Date: 20111222
  Serious: Yes (Other)
  Sender: FDA-Public Use
  Company Number: US-PFIZER INC-2010069867

PATIENT
  Sex: Female
  Weight: 63.492 kg

DRUGS (13)
  1. VITAMIN B [Concomitant]
     Dosage: UNK
  2. IRON [Concomitant]
  3. SOMA [Concomitant]
     Indication: MUSCLE SPASMS
     Dosage: 350 MG, 3X/DAY
     Route: 048
  4. AMBIEN [Concomitant]
     Indication: SLEEP DISORDER
     Dosage: 10 MG, 1X/DAY
     Route: 048
  5. LEXAPRO [Concomitant]
     Dosage: 20 MG, UNK
  6. VITAMIN D [Concomitant]
     Dosage: UNK
  7. PERCOCET [Concomitant]
     Dosage: 10/325
  8. LYRICA [Suspect]
     Indication: FIBROMYALGIA
     Dosage: 75 MG, 1X/DAY
     Route: 048
     Dates: start: 20090101, end: 20101001
  9. METHADONE [Concomitant]
  10. OS-CAL [Concomitant]
     Indication: HYPOVITAMINOSIS
     Dosage: 1000 MG, DAILY
  11. ATIVAN [Concomitant]
     Indication: NERVOUS SYSTEM DISORDER
     Dosage: 1 MG, 2X/DAY
     Route: 048
  12. NEURONTIN [Concomitant]
     Indication: AFFECTIVE DISORDER
     Dosage: UNK
  13. EFFEXOR XR [Concomitant]
     Indication: AFFECTIVE DISORDER
     Dosage: 75 MG, 1X/DAY

REACTIONS (13)
  - MEMORY IMPAIRMENT [None]
  - NERVOUS SYSTEM DISORDER [None]
  - DECREASED APPETITE [None]
  - WITHDRAWAL SYNDROME [None]
  - BODY HEIGHT DECREASED [None]
  - BEDRIDDEN [None]
  - FIBROMYALGIA [None]
  - SKIN REACTION [None]
  - INSOMNIA [None]
  - LOSS OF CONSCIOUSNESS [None]
  - SACROILIITIS [None]
  - RASH MACULAR [None]
  - NAUSEA [None]
